FAERS Safety Report 25945746 (Version 1)
Quarter: 2025Q4

REPORT INFORMATION
  Report Type: Spontaneous
  Country: US (occurrence: US)
  Receive Date: 20251021
  Receipt Date: 20251021
  Transmission Date: 20260117
  Serious: No
  Sender: BRISTOL-MYERS SQUIBB COMPANY
  Company Number: US-BRISTOL-MYERS SQUIBB COMPANY-2025-143412

PATIENT
  Age: 63 Year
  Sex: Male

DRUGS (2)
  1. ELIQUIS [Suspect]
     Active Substance: APIXABAN
     Indication: Deep vein thrombosis
     Dosage: 10MG TWICE DAILY FOR 7 DAYS
     Dates: start: 202412
  2. ELIQUIS [Suspect]
     Active Substance: APIXABAN
     Dates: end: 2025

REACTIONS (3)
  - Exposure to chemical pollution [Unknown]
  - Headache [Unknown]
  - Pain [Unknown]
